FAERS Safety Report 12930899 (Version 1)
Quarter: 2016Q4

REPORT INFORMATION
  Report Type: Spontaneous
  Country: US (occurrence: US)
  Receive Date: 20161110
  Receipt Date: 20161110
  Transmission Date: 20170207
  Serious: No
  Sender: FDA-Public Use
  Company Number: US-JAZZ-2016-US-017686

PATIENT
  Sex: Female

DRUGS (17)
  1. ACIDOPHILUS [Concomitant]
     Active Substance: LACTOBACILLUS ACIDOPHILUS
  2. ADRENAL [Concomitant]
     Active Substance: EPINEPHRINE
  3. ANDROGRAPHIS COMPLEX [Concomitant]
  4. POTASSIUM [Concomitant]
     Active Substance: POTASSIUM
  5. ULTRAZYME [Concomitant]
  6. WHITE WILLOW BARK [Concomitant]
  7. EFFEXOR [Concomitant]
     Active Substance: VENLAFAXINE HYDROCHLORIDE
  8. MAX [Concomitant]
  9. XYREM [Suspect]
     Active Substance: SODIUM OXYBATE
     Indication: NARCOLEPSY
     Dosage: 2.25 G, BID
     Route: 048
     Dates: start: 201510, end: 201510
  10. ARTIFICIAL TEARS [Concomitant]
     Active Substance: GLYCERIN\HYPROMELLOSES\POLYETHYLENE GLYCOL 400
  11. XYREM [Suspect]
     Active Substance: SODIUM OXYBATE
     Dosage: 2 G, BID
     Route: 048
     Dates: start: 201606
  12. FOLBEE PLUS [Concomitant]
  13. MULTIVITAMINS [Concomitant]
     Active Substance: VITAMINS
  14. GARLIC. [Concomitant]
     Active Substance: GARLIC
  15. XYREM [Suspect]
     Active Substance: SODIUM OXYBATE
     Indication: CATAPLEXY
     Dosage: DOSE ADJUSTMENTS
     Route: 048
     Dates: start: 201510, end: 201606
  16. COD LIVER [Concomitant]
     Active Substance: COD LIVER OIL
  17. CRANACTIN [Concomitant]
     Active Substance: DIETARY SUPPLEMENT

REACTIONS (1)
  - Intentional product use issue [Unknown]
